FAERS Safety Report 16910737 (Version 1)
Quarter: 2019Q4

REPORT INFORMATION
  Report Type: Spontaneous
  Country: US (occurrence: US)
  Receive Date: 20191012
  Receipt Date: 20191012
  Transmission Date: 20200122
  Serious: No
  Sender: FDA-Public Use
  Company Number: US-009507513-1910USA000235

PATIENT
  Sex: Female
  Weight: 46.71 kg

DRUGS (1)
  1. NEXPLANON [Suspect]
     Active Substance: ETONOGESTREL
     Indication: CONTRACEPTION
     Dosage: IMPLANT (1 ROD SUBDERMALLY EVERY 3 YEARS)
     Dates: start: 2018

REACTIONS (2)
  - Device deployment issue [Not Recovered/Not Resolved]
  - Implant site pain [Not Recovered/Not Resolved]
